FAERS Safety Report 24143064 (Version 1)
Quarter: 2024Q3

REPORT INFORMATION
  Report Type: Spontaneous
  Country: FI (occurrence: FI)
  Receive Date: 20240726
  Receipt Date: 20240726
  Transmission Date: 20241017
  Serious: Yes (Hospitalization, Other)
  Sender: MERCK
  Company Number: FI-MERCK-1101FIN00012

PATIENT
  Age: 51 Year
  Sex: Female

DRUGS (8)
  1. EMEND [Interacting]
     Active Substance: APREPITANT
     Indication: Vomiting
     Dosage: 80 MG
     Route: 048
     Dates: start: 20100126, end: 20100126
  2. EMEND [Interacting]
     Active Substance: APREPITANT
     Indication: Nausea
  3. YONDELIS [Suspect]
     Active Substance: TRABECTEDIN
     Indication: Ovarian cancer
     Dosage: 1.1 MG/M2
     Route: 042
     Dates: start: 20100125
  4. DOXORUBICIN HYDROCHLORIDE [Suspect]
     Active Substance: DOXORUBICIN HYDROCHLORIDE
     Indication: Ovarian cancer
     Dates: start: 20100125
  5. ZOFRAN [Concomitant]
     Active Substance: ONDANSETRON HYDROCHLORIDE
  6. PRIMPERAN [Concomitant]
     Active Substance: METOCLOPRAMIDE HYDROCHLORIDE
  7. TROPISETRON HYDROCHLORIDE [Concomitant]
     Active Substance: TROPISETRON HYDROCHLORIDE
     Route: 048
  8. METHYLPREDNISOLONE [Concomitant]
     Active Substance: METHYLPREDNISOLONE
     Route: 042

REACTIONS (5)
  - Vomiting [Recovering/Resolving]
  - Hepatic enzyme increased [Recovered/Resolved]
  - Nausea [Recovering/Resolving]
  - Drug interaction [Recovering/Resolving]
  - Subileus [Unknown]

NARRATIVE: CASE EVENT DATE: 20100126
